FAERS Safety Report 8563864-6 (Version None)
Quarter: 2012Q3

REPORT INFORMATION
  Report Type: 
  Country: None (occurrence: None)
  Receive Date: 20120727
  Receipt Date: 20120727
  Transmission Date: 20120928
  Serious: No
  Sender: FDA-Public Use
  Company Number: None

PATIENT
  Age: 57 Year
  Sex: Female
  Weight: 54.8852 kg

DRUGS (1)
  1. AMPYRA [Suspect]
     Indication: MULTIPLE SCLEROSIS
     Dosage: 10 MG BID PO
     Route: 048
     Dates: start: 20120712, end: 20120713

REACTIONS (4)
  - ARTHRALGIA [None]
  - ASTHENIA [None]
  - PRURITUS [None]
  - INSOMNIA [None]
